FAERS Safety Report 14016817 (Version 2)
Quarter: 2017Q4

REPORT INFORMATION
  Report Type: Spontaneous
  Country: US (occurrence: US)
  Receive Date: 20170927
  Receipt Date: 20171107
  Transmission Date: 20180321
  Serious: Yes (Disabling, Other)
  Sender: FDA-Public Use
  Company Number: US-JNJFOC-20170918763

PATIENT
  Sex: Female

DRUGS (4)
  1. XARELTO [Suspect]
     Active Substance: RIVAROXABAN
     Indication: TRANSIENT ISCHAEMIC ATTACK
     Dosage: AT NIGHT WITH LITTLE BIT OF FOOD
     Route: 048
     Dates: start: 2017
  2. XARELTO [Suspect]
     Active Substance: RIVAROXABAN
     Indication: THROMBOSIS
     Dosage: AT THE END OF FEB-2017 OR MAR-2017 AT NIGHT WITH LITTLE BIT OF FOOD
     Route: 048
     Dates: start: 2017, end: 2017
  3. XARELTO [Suspect]
     Active Substance: RIVAROXABAN
     Indication: THROMBOSIS
     Dosage: AT NIGHT WITH LITTLE BIT OF FOOD
     Route: 048
     Dates: start: 2017
  4. XARELTO [Suspect]
     Active Substance: RIVAROXABAN
     Indication: TRANSIENT ISCHAEMIC ATTACK
     Dosage: AT THE END OF FEB-2017 OR MAR-2017 AT NIGHT WITH LITTLE BIT OF FOOD
     Route: 048
     Dates: start: 2017, end: 2017

REACTIONS (8)
  - Asthenia [Unknown]
  - Chest pain [Unknown]
  - Diplegia [Unknown]
  - Monoplegia [Recovered/Resolved]
  - Dyspepsia [Unknown]
  - Dizziness [Unknown]
  - Thrombosis [Unknown]
  - Visual impairment [Unknown]

NARRATIVE: CASE EVENT DATE: 2017
